FAERS Safety Report 5086182-X (Version None)
Quarter: 2006Q3

REPORT INFORMATION
  Report Type: 
  Country: None (occurrence: None)
  Receive Date: 20060818
  Receipt Date: 20060808
  Transmission Date: 20061208
  Serious: Yes (Hospitalization)
  Sender: FDA-Public Use
  Company Number: 2006098171

PATIENT
  Age: 54 Year
  Sex: Male

DRUGS (1)
  1. MARAX [Suspect]
     Indication: DYSPNOEA
     Dosage: 2 IN 1 D, ORAL
     Route: 048
     Dates: start: 19830101

REACTIONS (3)
  - CONDITION AGGRAVATED [None]
  - INCORRECT DOSE ADMINISTERED [None]
  - INGUINAL HERNIA [None]
